FAERS Safety Report 23844059 (Version 1)
Quarter: 2024Q2

REPORT INFORMATION
  Report Type: Spontaneous
  Country: US (occurrence: US)
  Receive Date: 20240510
  Receipt Date: 20240510
  Transmission Date: 20240716
  Serious: No
  Sender: FDA-Public Use
  Company Number: US-P+L Developments of Newyork Corporation-2156779

PATIENT

DRUGS (1)
  1. NICOTINE POLACRILEX MINT [Suspect]
     Active Substance: NICOTINE
     Indication: Product used for unknown indication

REACTIONS (7)
  - Product packaging issue [Unknown]
  - Withdrawal syndrome [Unknown]
  - Headache [Unknown]
  - Agitation [Unknown]
  - Therapeutic product effect variable [Unknown]
  - Product physical consistency issue [Unknown]
  - Product taste abnormal [Unknown]
